FAERS Safety Report 10844782 (Version 4)
Quarter: 2017Q1

REPORT INFORMATION
  Report Type: Spontaneous
  Country: US (occurrence: US)
  Receive Date: 20150220
  Receipt Date: 20170131
  Transmission Date: 20170428
  Serious: Yes (Hospitalization)
  Sender: FDA-Public Use
  Company Number: US-BAYER-2015-026204

PATIENT
  Age: 19 Year
  Sex: Female
  Weight: 54.42 kg

DRUGS (5)
  1. VALTREX [Concomitant]
     Active Substance: VALACYCLOVIR HYDROCHLORIDE
     Indication: HERPES VIRUS INFECTION
     Dosage: UNK
     Dates: start: 2008
  2. ZOFRAN [Concomitant]
     Active Substance: ONDANSETRON HYDROCHLORIDE
     Indication: PRENATAL CARE
     Dosage: UNK
     Dates: start: 2008, end: 2014
  3. MIRENA [Suspect]
     Active Substance: LEVONORGESTREL
     Indication: CONTRACEPTION
     Dosage: 20 MCG/24HR, CONT
     Route: 015
     Dates: start: 20090406, end: 20100323
  4. ZOFRAN [Concomitant]
     Active Substance: ONDANSETRON HYDROCHLORIDE
     Indication: NAUSEA
  5. PRENATAL VITAMINS [VIT C,B5,B12,D2,B3,B6,RETINOL PALMIT,B2,B1 MONO [Concomitant]
     Indication: PRENATAL CARE
     Dosage: UNK
     Dates: start: 2008, end: 2014

REACTIONS (11)
  - Abdominal pain lower [None]
  - Device failure [None]
  - Device issue [None]
  - Fear [None]
  - Procedural pain [None]
  - Injury [None]
  - Uterine perforation [None]
  - Emotional distress [None]
  - Stress [None]
  - Depression [None]
  - Anxiety [None]

NARRATIVE: CASE EVENT DATE: 201003
